FAERS Safety Report 6028079-4 (Version None)
Quarter: 2009Q1

REPORT INFORMATION
  Report Type: 
  Country: None (occurrence: None)
  Receive Date: 20090102
  Receipt Date: 20081217
  Transmission Date: 20090719
  Serious: Yes (Hospitalization)
  Sender: FDA-Public Use
  Company Number: 2008S1012533

PATIENT
  Age: 67 Year
  Sex: Male

DRUGS (1)
  1. SODIUM PHOSPHATE DIBASIC/ SODIUM PHOSPHATE [Suspect]
     Indication: CONSTIPATION
     Dosage: RTL
     Route: 054

REACTIONS (7)
  - ANORECTAL DISCOMFORT [None]
  - APPLICATION SITE OEDEMA [None]
  - FAECAL INCONTINENCE [None]
  - FLATULENCE [None]
  - PROCTALGIA [None]
  - PYREXIA [None]
  - URINARY RETENTION [None]
